FAERS Safety Report 5750675-X (Version None)
Quarter: 2008Q2

REPORT INFORMATION
  Report Type: 
  Country: None (occurrence: None)
  Receive Date: 20080528
  Receipt Date: 20080519
  Transmission Date: 20081010
  Serious: Yes (Hospitalization)
  Sender: FDA-Public Use
  Company Number: US-JNJFOC-20080501718

PATIENT
  Sex: Female
  Weight: 85.2 kg

DRUGS (9)
  1. DOXORUBICIN HCL [Suspect]
     Indication: BREAST CANCER
     Dosage: 30MG/M2
     Route: 042
  2. DOCETAXEL [Suspect]
     Indication: BREAST CANCER
     Dosage: 60MG/M2
     Route: 042
  3. ATIVAN [Concomitant]
     Indication: AGITATION
     Dosage: AS REQUIRED
     Route: 048
  4. MORPHINE [Concomitant]
     Dosage: 10MG/5ML, 1.5 TEASPOONS, AS REQUIRED
     Route: 048
  5. XANAX [Concomitant]
     Dosage: AS REQUIRED
     Route: 048
  6. COMPAZINE [Concomitant]
     Dosage: AS REQUIRED
     Route: 065
  7. SYNTHROID [Concomitant]
     Route: 048
  8. PRILOSEC [Concomitant]
     Route: 048
  9. NYSTATIN [Concomitant]
     Route: 065

REACTIONS (4)
  - FEBRILE NEUTROPENIA [None]
  - NAUSEA [None]
  - SYNCOPE [None]
  - VOMITING [None]
